FAERS Safety Report 25788967 (Version 1)
Quarter: 2025Q3

REPORT INFORMATION
  Report Type: Spontaneous
  Country: US (occurrence: US)
  Receive Date: 20250911
  Receipt Date: 20250911
  Transmission Date: 20251020
  Serious: No
  Sender: SANOFI AVENTIS
  Company Number: US-SA-2025SA267579

PATIENT
  Age: 39 Year
  Sex: Male
  Weight: 92.971 kg

DRUGS (2)
  1. ALPROLIX [Suspect]
     Active Substance: EFTRENONACOG ALFA
     Indication: Factor IX deficiency
     Dosage: 3000 UNIT: ALPROLIX 3056 UNITS/VIAL, 8 VIALS  INFUSE 6112 UNITS (TWO VIALS OF 3506 UNITS) I.V. PUSH
     Route: 042
     Dates: start: 20250402
  2. ALPROLIX [Suspect]
     Active Substance: EFTRENONACOG ALFA
     Indication: Factor IX deficiency
     Dosage: 3000 UNIT: ALPROLIX 3056 UNITS/VIAL, 8 VIALS  INFUSE 6112 UNITS (TWO VIALS OF 3506 UNITS) I.V. PUSH
     Route: 042
     Dates: start: 20250402

REACTIONS (1)
  - Ear infection [Unknown]
